FAERS Safety Report 7957406-3 (Version None)
Quarter: 2011Q4

REPORT INFORMATION
  Report Type: 
  Country: None (occurrence: None)
  Receive Date: 20111205
  Receipt Date: 20111125
  Transmission Date: 20120403
  Serious: Yes (Other)
  Sender: FDA-Public Use
  Company Number: JP-B.I. PHARMACEUTICALS,INC./RIDGEFIELD-2011-BP-26722YA

PATIENT
  Sex: Male

DRUGS (3)
  1. TAMSULOSIN HCL [Suspect]
     Indication: BENIGN PROSTATIC HYPERPLASIA
     Dosage: 0.2 MG
     Route: 048
     Dates: start: 20090904, end: 20091029
  2. MIRABEGRON [Suspect]
     Indication: HYPERTONIC BLADDER
     Dosage: 50 MG
     Route: 048
     Dates: start: 20111031, end: 20111112
  3. URIEF (SILODOSIN) [Concomitant]
     Dosage: 4 MG
     Route: 048
     Dates: start: 20091030

REACTIONS (2)
  - URINARY RETENTION [None]
  - DRUG INEFFECTIVE [None]
